FAERS Safety Report 10016104 (Version 2)
Quarter: 2014Q1

REPORT INFORMATION
  Report Type: Spontaneous
  Country: IT (occurrence: IT)
  Receive Date: 20140317
  Receipt Date: 20140317
  Transmission Date: 20141002
  Serious: Yes (Other)
  Sender: FDA-Public Use
  Company Number: IT-UCBSA-113015

PATIENT
  Age: 94 Year
  Sex: Female

DRUGS (7)
  1. XYZAL [Suspect]
     Dosage: STRENGTH: 5 MG, 20 TABLETS
     Dates: start: 20130307, end: 20131230
  2. BROMAZEPAM [Suspect]
     Dosage: AS USED:15 DROPS AS NECESSARY
     Route: 048
     Dates: start: 20130101, end: 20131230
  3. CARDIOASPIRIN [Concomitant]
     Dosage: 100 MG, 30 TABLETS
     Dates: start: 20121120, end: 20131230
  4. LANOXIN [Concomitant]
     Dosage: 0.0625 MG, 30 TABLETS
     Route: 048
     Dates: start: 20130319, end: 20131230
  5. NEXIUM [Concomitant]
     Dosage: 20 MG, 14 TABLETS
     Dates: start: 20121008, end: 20131230
  6. ENALAPRIL MYLAN GENERICS [Concomitant]
     Dosage: 20 MG, 14 TABLETS
     Route: 048
     Dates: start: 20120902, end: 20131230
  7. CARVEDILOLO MYLAN GENERICS [Concomitant]
     Dosage: 6.25 MG, 28 TABLETS
     Route: 048
     Dates: start: 20120523, end: 20131230

REACTIONS (2)
  - Atrial fibrillation [Unknown]
  - Sopor [Recovering/Resolving]
